FAERS Safety Report 5388485-8 (Version None)
Quarter: 2007Q3

REPORT INFORMATION
  Report Type: 
  Country: None (occurrence: None)
  Receive Date: 20070716
  Receipt Date: 20070705
  Transmission Date: 20080115
  Serious: Yes (Hospitalization)
  Sender: FDA-Public Use
  Company Number: FR-PFIZER INC-2006127499

PATIENT
  Sex: Female

DRUGS (3)
  1. GENOTONORM [Suspect]
     Indication: HYPOPITUITARISM
     Route: 058
  2. TEGRETOL [Concomitant]
  3. DECAPEPTYL [Concomitant]
     Dosage: FREQ:3 MG MONTHLY
     Route: 048
     Dates: start: 20050214, end: 20061107

REACTIONS (2)
  - NEOPLASM RECURRENCE [None]
  - OPTIC TRACT GLIOMA [None]
